FAERS Safety Report 7289164-2 (Version None)
Quarter: 2011Q1

REPORT INFORMATION
  Report Type: 
  Country: None (occurrence: None)
  Receive Date: 20110201
  Receipt Date: 20110118
  Transmission Date: 20110831
  Serious: Yes (Death)
  Sender: FDA-Public Use
  Company Number: KV201000373

PATIENT
  Age: 62 Year
  Sex: Male
  Weight: 83.9 kg

DRUGS (9)
  1. ATIVAN [Concomitant]
  2. SENNA /00142201/ (SENNA ALEXANDRIA) [Concomitant]
  3. MIDODRINE HYDROCHLORIDE [Concomitant]
  4. MORPHINE SULFATE [Suspect]
     Indication: PAIN
     Dosage: SEE IMAGE
     Route: 048
     Dates: start: 20060706, end: 20060707
  5. MORPHINE SULFATE [Suspect]
     Indication: PAIN
     Dosage: SEE IMAGE
     Route: 048
     Dates: start: 20060706, end: 20060706
  6. MORPHINE SULFATE [Suspect]
     Indication: PAIN
     Dosage: SEE IMAGE
     Route: 048
     Dates: start: 20060707, end: 20060707
  7. MORPHINE SULFATE [Suspect]
     Indication: PAIN
     Dosage: SEE IMAGE
     Route: 048
     Dates: start: 20060706, end: 20060706
  8. MORPHINE SULFATE [Suspect]
     Indication: PAIN
     Dosage: SEE IMAGE
     Route: 048
     Dates: start: 20060708
  9. MORPHINE SULFATE [Suspect]
     Indication: PAIN
     Dosage: SEE IMAGE
     Route: 048
     Dates: start: 20060708

REACTIONS (1)
  - DEATH [None]
